FAERS Safety Report 6181729-4 (Version None)
Quarter: 2009Q2

REPORT INFORMATION
  Report Type: 
  Country: None (occurrence: None)
  Receive Date: 20090424
  Receipt Date: 20090413
  Transmission Date: 20091009
  Serious: Yes (Death)
  Sender: FDA-Public Use
  Company Number: THYM-1000998

PATIENT
  Age: 8 Year
  Sex: Female
  Weight: 23 kg

DRUGS (5)
  1. THYMOGLOBULIN [Suspect]
     Indication: STEM CELL TRANSPLANT
     Dosage: 1.25 MG/KG, QD, INTRAVENOUS
     Route: 042
     Dates: start: 20090214, end: 20090215
  2. RITUXIMAB (GENETICAL RECOMBINATION) (RITUXIMAB (GENETICAL RECOMBINATIO [Suspect]
     Indication: EPSTEIN-BARR VIRUS INFECTION
     Dosage: 330 MG
     Dates: start: 20090328
  3. MELPHALAN (MELPHALAN) [Concomitant]
  4. DEXAMETHASONE SODIUM PHOSPHATE [Concomitant]
  5. HYDROXYZINE HCL [Concomitant]

REACTIONS (14)
  - ALANINE AMINOTRANSFERASE INCREASED [None]
  - ASPARTATE AMINOTRANSFERASE INCREASED [None]
  - BLOOD BILIRUBIN INCREASED [None]
  - CARDIAC ARREST [None]
  - DYSPNOEA [None]
  - EPSTEIN-BARR VIRUS INFECTION [None]
  - GENERAL PHYSICAL HEALTH DETERIORATION [None]
  - INFUSION RELATED REACTION [None]
  - LIVER DISORDER [None]
  - MULTI-ORGAN FAILURE [None]
  - OXYGEN SATURATION DECREASED [None]
  - PLEURAL EFFUSION [None]
  - PYREXIA [None]
  - URINE OUTPUT DECREASED [None]
